FAERS Safety Report 10358182 (Version 2)
Quarter: 2014Q3

REPORT INFORMATION
  Report Type: Spontaneous
  Country: IT (occurrence: IT)
  Receive Date: 20140801
  Receipt Date: 20140908
  Transmission Date: 20150326
  Serious: Yes (Other)
  Sender: FDA-Public Use
  Company Number: IT-PFIZER INC-2014215803

PATIENT
  Age: 87 Year
  Sex: Female

DRUGS (4)
  1. PLAVIX [Concomitant]
     Active Substance: CLOPIDOGREL BISULFATE
     Indication: PERIPHERAL ARTERIAL OCCLUSIVE DISEASE
     Dosage: 75 MG, UNK
     Route: 048
     Dates: start: 20080101, end: 20140707
  2. TORVAST [Concomitant]
     Active Substance: ATORVASTATIN
     Indication: HYPERCHOLESTEROLAEMIA
     Dosage: 20 MG, UNK
     Route: 048
     Dates: start: 20080101, end: 20140707
  3. TAREG [Concomitant]
     Active Substance: VALSARTAN
     Indication: HYPERTENSION
     Dosage: 80 MG, UNK
     Route: 048
     Dates: start: 20080101, end: 20140707
  4. LYRICA [Suspect]
     Active Substance: PREGABALIN
     Indication: NEURALGIA
     Dosage: 150 MG, TOTAL
     Route: 048
     Dates: start: 20140706, end: 20140706

REACTIONS (3)
  - Gait disturbance [Recovering/Resolving]
  - Vertigo [Recovering/Resolving]
  - Dysstasia [Recovering/Resolving]

NARRATIVE: CASE EVENT DATE: 20140707
